FAERS Safety Report 9542965 (Version 3)
Quarter: 2013Q4

REPORT INFORMATION
  Report Type: Spontaneous
  Country: JP (occurrence: JP)
  Receive Date: 20130923
  Receipt Date: 20131112
  Transmission Date: 20140711
  Serious: Yes (Other)
  Sender: FDA-Public Use
  Company Number: JP-UCBSA-098529

PATIENT
  Age: 89 Year
  Sex: Male
  Weight: 40 kg

DRUGS (8)
  1. E KEPPRA [Suspect]
     Indication: EPILEPSY
     Route: 048
     Dates: start: 20130515, end: 20130831
  2. AMLODIPINE [Concomitant]
     Dosage: 5 MG DAILY
     Route: 048
     Dates: start: 20130522
  3. TAMSULOSIN HYDROCHLORIDE [Concomitant]
     Dosage: 0.2 MG DAILY
     Route: 048
     Dates: start: 20130522
  4. LANDSEN [Concomitant]
     Dosage: 0.5 MG DAILY
     Route: 048
     Dates: start: 20130522
  5. ALEVIATIN [Concomitant]
     Dosage: 200 MG DAILY
     Route: 048
     Dates: start: 20130522
  6. LANSOPRAZOLE [Concomitant]
     Dosage: 15 MG DAILY
     Route: 048
     Dates: start: 20130522
  7. MAGAMITT [Concomitant]
     Dosage: 990 MG DAILY
     Route: 048
     Dates: start: 20130522
  8. EPINASTINE [Concomitant]
     Route: 048

REACTIONS (1)
  - Thrombocytopenia [Recovering/Resolving]
